FAERS Safety Report 5244059-0 (Version None)
Quarter: 2007Q1

REPORT INFORMATION
  Report Type: 
  Country: None (occurrence: None)
  Receive Date: 20070222
  Receipt Date: 20070209
  Transmission Date: 20070707
  Serious: Yes (Other)
  Sender: FDA-Public Use
  Company Number: PHBS2007IT02787

PATIENT
  Sex: Female

DRUGS (11)
  1. SANDOSTATIN LAR [Suspect]
  2. PARLODEL [Suspect]
  3. CALCIUM SANDOZ [Concomitant]
  4. DEURSIL [Concomitant]
  5. DOSTINEX [Concomitant]
  6. ENDOXAN [Concomitant]
  7. CONDRAL [Concomitant]
  8. ARIMIDEX [Concomitant]
  9. ASCORBIC ACID [Concomitant]
  10. MELATONIN [Concomitant]
  11. GLIFOSINA [Concomitant]

REACTIONS (1)
  - ANAEMIA HAEMOLYTIC AUTOIMMUNE [None]
